FAERS Safety Report 15823026 (Version 9)
Quarter: 2019Q3

REPORT INFORMATION
  Report Type: Spontaneous
  Country: US (occurrence: US)
  Receive Date: 20190114
  Receipt Date: 20190904
  Transmission Date: 20191004
  Serious: Yes (Hospitalization, Other)
  Sender: FDA-Public Use
  Company Number: US-PFIZER INC-2019016248

PATIENT
  Age: 70 Year
  Sex: Female
  Weight: 93 kg

DRUGS (9)
  1. IBRANCE [Suspect]
     Active Substance: PALBOCICLIB
     Dosage: 125 MG, AS NEEDED
     Route: 048
     Dates: start: 2018, end: 2018
  2. IBRANCE [Suspect]
     Active Substance: PALBOCICLIB
     Dosage: 100 MG, AS NEEDED
     Route: 048
     Dates: start: 201811
  3. CALCIUM CARBONATE. [Concomitant]
     Active Substance: CALCIUM CARBONATE
     Indication: BONE DISORDER
     Dosage: UNK
     Dates: start: 201403
  4. AROMASIN [Concomitant]
     Active Substance: EXEMESTANE
     Indication: BREAST CANCER FEMALE
     Dosage: 25 MG, DAILY
     Dates: start: 20180814
  5. XGEVA [Concomitant]
     Active Substance: DENOSUMAB
     Indication: BONE DISORDER
     Dosage: 120 MG, UNK
     Route: 058
     Dates: start: 20180320, end: 20190402
  6. IBRANCE [Suspect]
     Active Substance: PALBOCICLIB
     Indication: BREAST CANCER METASTATIC
     Dosage: 125 MG, CYCLIC (DAILY ON DAYS 1-21 AND OFF 7 DAYS)
     Route: 048
     Dates: start: 20180814, end: 2018
  7. CALCIUM CARBONATE. [Concomitant]
     Active Substance: CALCIUM CARBONATE
     Dosage: UNK
     Dates: start: 20160320
  8. IBRANCE [Suspect]
     Active Substance: PALBOCICLIB
     Dosage: 100 MG, CYCLIC (DAILY, 21 DAYS FOR EVERY 28 DAYS)
     Route: 048
     Dates: start: 2018
  9. XGEVA [Concomitant]
     Active Substance: DENOSUMAB
     Indication: BREAST CANCER METASTATIC

REACTIONS (18)
  - Tooth abscess [Unknown]
  - Osteonecrosis [Unknown]
  - Alopecia [Unknown]
  - Dry mouth [Unknown]
  - Full blood count decreased [Recovering/Resolving]
  - Fatigue [Unknown]
  - Restless legs syndrome [Unknown]
  - Neuropathy peripheral [Unknown]
  - Weight decreased [Unknown]
  - Gait disturbance [Unknown]
  - White blood cell count decreased [Not Recovered/Not Resolved]
  - Neutrophil count decreased [Not Recovered/Not Resolved]
  - Decreased appetite [Unknown]
  - Dysstasia [Unknown]
  - Insomnia [Unknown]
  - Memory impairment [Not Recovered/Not Resolved]
  - Dry skin [Unknown]
  - Anxiety [Unknown]

NARRATIVE: CASE EVENT DATE: 2018
